FAERS Safety Report 6991684-2 (Version None)
Quarter: 2010Q3

REPORT INFORMATION
  Report Type: 
  Country: None (occurrence: None)
  Receive Date: 20100915
  Receipt Date: 20100915
  Transmission Date: 20110219
  Serious: Yes (Other)
  Sender: FDA-Public Use
  Company Number: None

PATIENT
  Age: 24 Year
  Sex: Female
  Weight: 90.7194 kg

DRUGS (2)
  1. MIRENA [Suspect]
     Indication: CONTRACEPTION
     Dates: start: 20100103
  2. MIRENA [Suspect]

REACTIONS (2)
  - DEVICE DISLOCATION [None]
  - WRONG TECHNIQUE IN DRUG USAGE PROCESS [None]
